FAERS Safety Report 20311373 (Version 1)
Quarter: 2022Q1

REPORT INFORMATION
  Report Type: Spontaneous
  Country: US (occurrence: US)
  Receive Date: 20220107
  Receipt Date: 20220107
  Transmission Date: 20220423
  Serious: No
  Sender: FDA-Public Use
  Company Number: US-009507513-2201USA000976

PATIENT
  Age: 70 Year
  Sex: Male

DRUGS (4)
  1. CUBICIN [Suspect]
     Active Substance: DAPTOMYCIN
     Indication: Staphylococcus test positive
     Dosage: 8 MILLIGRAM/KILOGRAM
  2. CUBICIN [Suspect]
     Active Substance: DAPTOMYCIN
     Dosage: 8 MILLIGRAM/KILOGRAM, ONCE DAILY
     Route: 042
  3. CEFTAROLINE [Suspect]
     Active Substance: CEFTAROLINE
     Indication: Staphylococcus test positive
     Dosage: 600 MILLIGRAM, Q8H
  4. OXACILLIN [Suspect]
     Active Substance: OXACILLIN SODIUM
     Indication: Staphylococcus test positive
     Dosage: 2 GRAM, Q4H

REACTIONS (1)
  - Drug ineffective [Recovered/Resolved]
